FAERS Safety Report 10419060 (Version 1)
Quarter: 2014Q2

REPORT INFORMATION
  Report Type: Spontaneous
  Country: US (occurrence: None)
  Receive Date: 20140617
  Receipt Date: 20140617
  Transmission Date: 20141212
  Serious: Yes (Hospitalization)
  Sender: FDA-Public Use
  Company Number: USW201403-000058

PATIENT
  Age: 64 Year
  Sex: Male
  Weight: 79.37 kg

DRUGS (3)
  1. APOKYN (APOMORPHINE HYDROCHLORIDE) (APOMORPHINE HYDROCHLORIDE) [Suspect]
     Indication: PARKINSON^S DISEASE
     Dosage: 2 ML, 0.4 ML, 5 TIMES A DAY
     Dates: start: 2011
  2. CARBIDOPA/LEVODOPA [Concomitant]
  3. STALEVO (CARBIDOPA, LEVODOPA, ENTACAPONE) [Concomitant]

REACTIONS (1)
  - Fall [None]
